FAERS Safety Report 9235517 (Version 1)
Quarter: 2013Q2

REPORT INFORMATION
  Report Type: Spontaneous
  Country: US (occurrence: None)
  Receive Date: 20130416
  Receipt Date: 20130416
  Transmission Date: 20140414
  Serious: No
  Sender: FDA-Public Use
  Company Number: None

PATIENT
  Sex: Female

DRUGS (1)
  1. FORTEO 600MCG/2.4ML PEN [Suspect]
     Dosage: INJECT 20MCG SUBCUTANEOUSLY EVERY DAY AS DIRECTED **EXPIRES 28 DAYS AFTER INITIAL ENTRY^
     Route: 058
     Dates: start: 20111205, end: 20130404

REACTIONS (1)
  - Pain in extremity [None]
